FAERS Safety Report 4838097-7 (Version None)
Quarter: 2005Q4

REPORT INFORMATION
  Report Type: 
  Country: None (occurrence: None)
  Receive Date: 20051123
  Receipt Date: 20051123
  Transmission Date: 20060501
  Serious: Yes (Hospitalization)
  Sender: FDA-Public Use
  Company Number: None

PATIENT
  Age: 61 Year
  Sex: Female

DRUGS (6)
  1. RITUXIMAB [Suspect]
     Indication: CHRONIC LYMPHOCYTIC LEUKAEMIA
     Dosage: 50MG/HR, 600MG
  2. METFORMIN [Concomitant]
  3. ALLOPURINOL [Concomitant]
  4. LORATADINE [Concomitant]
  5. BACTRIM [Concomitant]
  6. PIOGLITAZONE HCL [Concomitant]

REACTIONS (4)
  - BACK PAIN [None]
  - BLOOD PRESSURE DECREASED [None]
  - INFUSION RELATED REACTION [None]
  - NAUSEA [None]
